FAERS Safety Report 6402099-X (Version None)
Quarter: 2009Q4

REPORT INFORMATION
  Report Type: 
  Country: None (occurrence: None)
  Receive Date: 20091015
  Receipt Date: 20091008
  Transmission Date: 20100525
  Serious: Yes (Hospitalization)
  Sender: FDA-Public Use
  Company Number: US-CELGENEUS-163-20785-09100843

PATIENT
  Sex: Male

DRUGS (3)
  1. THALOMID [Suspect]
     Indication: MULTIPLE MYELOMA
     Route: 048
     Dates: start: 20090801
  2. THALOMID [Suspect]
     Route: 048
     Dates: start: 20090201
  3. THALOMID [Suspect]
     Route: 048
     Dates: start: 20090701

REACTIONS (2)
  - FEMUR FRACTURE [None]
  - NEUROPATHY PERIPHERAL [None]
